FAERS Safety Report 14288667 (Version 1)
Quarter: 2017Q4

REPORT INFORMATION
  Report Type: Spontaneous
  Country: US (occurrence: US)
  Receive Date: 20171214
  Receipt Date: 20171214
  Transmission Date: 20180321
  Serious: No
  Sender: FDA-Public Use
  Company Number: US-GLAXOSMITHKLINE-US2017189735

PATIENT
  Age: 36 Year
  Sex: Male

DRUGS (1)
  1. ABREVA [Suspect]
     Active Substance: DOCOSANOL
     Indication: ORAL HERPES
     Dosage: 3 TIMES A DAY
     Dates: start: 20171117, end: 20171124

REACTIONS (5)
  - Inappropriate schedule of drug administration [Unknown]
  - Chapped lips [Recovered/Resolved]
  - Incorrect drug administration duration [Unknown]
  - Hypersensitivity [Recovered/Resolved]
  - Application site swelling [Recovered/Resolved]

NARRATIVE: CASE EVENT DATE: 20171120
